FAERS Safety Report 11155241 (Version 3)
Quarter: 2015Q3

REPORT INFORMATION
  Report Type: Spontaneous
  Country: US (occurrence: US)
  Receive Date: 20150602
  Receipt Date: 20150721
  Transmission Date: 20151125
  Serious: No
  Sender: FDA-Public Use
  Company Number: US-PFIZER INC-2015177949

PATIENT
  Age: 73 Year
  Sex: Male
  Weight: 120 kg

DRUGS (11)
  1. GEMZAR [Concomitant]
     Active Substance: GEMCITABINE HYDROCHLORIDE
     Dosage: 2.000 MG (AT 800 MG/M2) INTRAVENOUS Q.D. OVER 30 MINUTES FOR 1 DAY IN NS 250 ML (3))
     Route: 042
  2. NEULASTA [Concomitant]
     Active Substance: PEGFILGRASTIM
     Dosage: 6 MG, 1X/DAY
     Route: 058
  3. PRILOSEC [Concomitant]
     Active Substance: OMEPRAZOLE MAGNESIUM
     Dosage: 20 MG, 2X/DAY
     Route: 048
  4. ZOFRAN [Concomitant]
     Active Substance: ONDANSETRON HYDROCHLORIDE
     Dosage: 8 MG, AS NEEDED (8MG ORAL 3 TIMES PER DAY PRN)
     Route: 048
  5. ALOXI [Concomitant]
     Active Substance: PALONOSETRON HYDROCHLORIDE
     Dosage: UNK (0.25 MG LNTRAVENOUS Q.D. OVER 15 MINUTES FOR 1 DAY IN NS 50 ML (2) AT THE RATE OF 200 ML/HR)
  6. SUTENT [Suspect]
     Active Substance: SUNITINIB MALATE
     Indication: CHOLANGIOCARCINOMA
     Dosage: 37.5 MG, CYCLIC (28 DAYS ON/14 DAYS OFF)
     Dates: start: 20150601, end: 20150701
  7. EMEND [Concomitant]
     Active Substance: APREPITANT
     Dosage: 150 MG LNTRAVENOUS Q.D. OVER 20 MINUTES FOR 1 DAY IN NS 150 ML (1) AT THE RATE OF 450 ML/HR)
     Route: 042
  8. NORCO [Concomitant]
     Active Substance: ACETAMINOPHEN\HYDROCODONE BITARTRATE
     Indication: PAIN
     Dosage: AS NEEDED (HYDROCODONE BITARTRATE 7.5MG/PARACETAMOL 325MG)
  9. DEXAMETHASONE SODIUM PHOSPHATE. [Concomitant]
     Active Substance: DEXAMETHASONE SODIUM PHOSPHATE
     Dosage: 10 MG LNTRAVENOUS Q.D. OVER 15 MINUTES FOR 1 DAY IN NS 50 ML(2) AT THE RATE OF 200 ML/HR)
     Route: 042
  10. CLARITIN [Concomitant]
     Active Substance: LORATADINE
     Dosage: 10 MG, CYCLIC  (FOR 7 DAYS BEGINNING THE DAY BEFORE NEULASTA SHOT)
     Route: 048
  11. COZAAR [Concomitant]
     Active Substance: LOSARTAN POTASSIUM
     Dosage: 50 MG, 1X/DAY
     Route: 048

REACTIONS (9)
  - Fatigue [Unknown]
  - Cholangiocarcinoma [Unknown]
  - Nasal dryness [Unknown]
  - Nasal congestion [Unknown]
  - Disease progression [Unknown]
  - Anxiety [Unknown]
  - Product use issue [Unknown]
  - Sleep disorder [Unknown]
  - Dehydration [Unknown]
